FAERS Safety Report 9227466 (Version 1)
Quarter: 2013Q2

REPORT INFORMATION
  Report Type: Spontaneous
  Country: US (occurrence: US)
  Receive Date: 20130412
  Receipt Date: 20130412
  Transmission Date: 20140414
  Serious: No
  Sender: FDA-Public Use
  Company Number: US-PFIZER INC-2013112676

PATIENT
  Age: 80 Year
  Sex: Female

DRUGS (2)
  1. ADVIL [Suspect]
     Indication: HAEMORRHOIDS
     Dosage: UNK
  2. TYLENOL [Suspect]
     Indication: HAEMORRHOIDS
     Dosage: UNK

REACTIONS (2)
  - Off label use [Unknown]
  - Haemorrhoids [Unknown]
